FAERS Safety Report 5271898-2 (Version None)
Quarter: 2007Q1

REPORT INFORMATION
  Report Type: 
  Country: None (occurrence: None)
  Receive Date: 20070316
  Receipt Date: 20070227
  Transmission Date: 20070707
  Serious: Yes (Other)
  Sender: FDA-Public Use
  Company Number: AMI0001153

PATIENT
  Age: 50 Year
  Sex: Female

DRUGS (1)
  1. PENICILLAMINE [Suspect]
     Indication: SCLERODERMA
     Dosage: PO
     Route: 048

REACTIONS (4)
  - CHROMOSOME ANALYSIS ABNORMAL [None]
  - CHRONIC MYELOID LEUKAEMIA [None]
  - CREST SYNDROME [None]
  - POLYARTHRITIS [None]
